FAERS Safety Report 18115215 (Version 1)
Quarter: 2020Q3

REPORT INFORMATION
  Report Type: Spontaneous
  Country: DE (occurrence: DE)
  Receive Date: 20200805
  Receipt Date: 20200805
  Transmission Date: 20201103
  Serious: Yes (Congenital Anomaly)
  Sender: FDA-Public Use
  Company Number: DE-ELI_LILLY_AND_COMPANY-DE202007010956

PATIENT
  Sex: Female
  Weight: 3.73 kg

DRUGS (2)
  1. DULOXETINE HYDROCHLORIDE. [Suspect]
     Active Substance: DULOXETINE HYDROCHLORIDE
     Indication: DEPRESSION
     Dosage: 125 MG/D / DOSAGE REDUCED STEP BY STEP TO 30MG DAILY
     Route: 064
     Dates: start: 20190709, end: 20200414
  2. DULOXETINE HYDROCHLORIDE. [Suspect]
     Active Substance: DULOXETINE HYDROCHLORIDE
     Indication: DEPRESSION
     Dosage: 125 MG/D / DOSAGE REDUCED STEP BY STEP TO 30MG DAILY
     Route: 064
     Dates: start: 20190709, end: 20200414

REACTIONS (2)
  - Foetal exposure during pregnancy [Recovered/Resolved]
  - Limb reduction defect [Not Recovered/Not Resolved]
